FAERS Safety Report 4558333-4 (Version None)
Quarter: 2005Q1

REPORT INFORMATION
  Report Type: 
  Country: None (occurrence: None)
  Receive Date: 20050121
  Receipt Date: 20040308
  Transmission Date: 20050727
  Serious: No
  Sender: FDA-Public Use
  Company Number: US-BRISTOL-MYERS SQUIBB COMPANY-12527867

PATIENT
  Age: 10 Year
  Sex: Male

DRUGS (2)
  1. CEFZIL [Suspect]
     Indication: INFECTION
     Route: 048
  2. CEFTIN [Suspect]
     Indication: INFECTION
     Route: 048

REACTIONS (2)
  - MEDICATION ERROR [None]
  - STOMACH DISCOMFORT [None]
